FAERS Safety Report 16823616 (Version 1)
Quarter: 2019Q3

REPORT INFORMATION
  Report Type: Spontaneous
  Country: NG (occurrence: NG)
  Receive Date: 20190918
  Receipt Date: 20190918
  Transmission Date: 20191005
  Serious: Yes (Other)
  Sender: FDA-Public Use
  Company Number: NG-GLAXOSMITHKLINE-NG2019169031

PATIENT

DRUGS (1)
  1. CATAFLAM [Suspect]
     Active Substance: DICLOFENAC POTASSIUM
     Indication: NECK PAIN
     Dosage: 50 MG, UNK
     Route: 065

REACTIONS (1)
  - Gastric ulcer [Unknown]
